FAERS Safety Report 8985934 (Version 1)
Quarter: 2012Q4

REPORT INFORMATION
  Report Type: 
  Country: US (occurrence: US)
  Receive Date: 20121226
  Receipt Date: 20121226
  Transmission Date: 20130627
  Serious: No
  Sender: FDA-Public Use
  Company Number: US-ABBOTT-12P-163-0896816-00

PATIENT
  Age: 58 None
  Sex: Male
  Weight: 63.56 kg

DRUGS (4)
  1. LUPRON DEPOT 45 MG [Suspect]
     Indication: PROSTATE CANCER
     Dates: start: 20111209, end: 201201
  2. LUPRON DEPOT 30 MG [Suspect]
     Indication: PROSTATE CANCER
     Dates: start: 2011, end: 201112
  3. CASADEX [Concomitant]
     Indication: PROSTATE CANCER
  4. MEGACE [Concomitant]
     Indication: HOT FLUSH

REACTIONS (3)
  - Urticaria [Recovered/Resolved]
  - Pruritus [Recovered/Resolved]
  - Pain [Recovered/Resolved]
